FAERS Safety Report 16638296 (Version 2)
Quarter: 2019Q3

REPORT INFORMATION
  Report Type: Report from Study
  Country: JP (occurrence: JP)
  Receive Date: 20190726
  Receipt Date: 20190808
  Transmission Date: 20191004
  Serious: Yes (Hospitalization)
  Sender: FDA-Public Use
  Company Number: JP-PFIZER INC-2019308121

PATIENT
  Age: 83 Year
  Sex: Female
  Weight: 59.9 kg

DRUGS (20)
  1. V ROHTO PREMIUM [Concomitant]
     Indication: PROPHYLAXIS
     Dosage: 1 DROP, AS NEEDED
     Route: 047
     Dates: start: 20190622
  2. REBAMIPIDE [Concomitant]
     Active Substance: REBAMIPIDE
     Indication: PROPHYLAXIS AGAINST GASTROINTESTINAL ULCER
     Dosage: 100 MG, 2X/DAY
     Route: 048
     Dates: start: 2014, end: 20190712
  3. PF-04449913 [Suspect]
     Active Substance: GLASDEGIB
     Indication: ACUTE MYELOID LEUKAEMIA
     Dosage: 100 MG, 1X/DAY
     Route: 048
     Dates: start: 20190327, end: 20190408
  4. CYLOCIDE [Suspect]
     Active Substance: CYTARABINE
     Dosage: 40 MG,INJECTION,2X/DAY
     Route: 040
     Dates: start: 20190508, end: 20190517
  5. CYLOCIDE [Suspect]
     Active Substance: CYTARABINE
     Indication: ACUTE MYELOID LEUKAEMIA
     Dosage: 40 MG, INJECTION, 2X/DAY
     Route: 040
     Dates: start: 20190327, end: 20190405
  6. CYLOCIDE [Suspect]
     Active Substance: CYTARABINE
     Dosage: 40 MG, INJECTION,2X/DAY
     Route: 040
     Dates: start: 20190605, end: 20190614
  7. BAKTAR [Concomitant]
     Active Substance: SULFAMETHOXAZOLE\TRIMETHOPRIM
     Indication: PROPHYLAXIS
     Dosage: 480 MG, CYCLIC (3 TIMES A WEEK)
     Route: 048
     Dates: start: 20190401
  8. HACHIAZULE [SODIUM BICARBONATE;SODIUM GUALENATE] [Concomitant]
     Indication: PROPHYLAXIS
     Dosage: 2 G, GARGLE,OROPHARYNGEAL, AS NEEDED
     Route: 048
     Dates: start: 20190513
  9. PF-04449913 [Suspect]
     Active Substance: GLASDEGIB
     Dosage: 100 MG, 1X/DAY
     Route: 048
     Dates: start: 20190425, end: 20190718
  10. ACECOL [TEMOCAPRIL HYDROCHLORIDE] [Concomitant]
     Indication: HYPERTENSION
     Dosage: 2 MG, 1X/DAY
     Route: 048
     Dates: start: 2014
  11. PREDNISOLONE. [Concomitant]
     Active Substance: PREDNISOLONE
     Indication: POLYMYALGIA RHEUMATICA
     Dosage: 7.5 MG, 1X/DAY
     Route: 048
     Dates: start: 20190201
  12. CYLOCIDE [Suspect]
     Active Substance: CYTARABINE
     Dosage: 40 MG, INJECTION,2X/DAY
     Route: 040
     Dates: start: 20190703, end: 20190712
  13. EQUA [Concomitant]
     Active Substance: VILDAGLIPTIN
     Indication: PROPHYLAXIS
     Dosage: 50 MG, 2X/DAY
     Route: 048
     Dates: start: 20190315
  14. RINDERON VG [Concomitant]
     Active Substance: BETAMETHASONE VALERATE\GENTAMICIN SULFATE
     Indication: INJECTION SITE REACTION
     Dosage: 0.5 G, 2X/DAY
     Route: 061
     Dates: start: 20190709
  15. DENOSALIN [Concomitant]
     Indication: PROPHYLAXIS
     Dosage: 500 ML, 1X/DAY
     Route: 042
     Dates: start: 20190703, end: 20190712
  16. AMLODIPINE BESILATE [Concomitant]
     Active Substance: AMLODIPINE BESYLATE
     Indication: HYPERTENSION
     Dosage: 2.5 MG, 1X/DAY
     Route: 048
     Dates: start: 2014
  17. IRBESARTAN. [Concomitant]
     Active Substance: IRBESARTAN
     Indication: HYPERTENSION
     Dosage: 100 MG, 1X/DAY
     Route: 048
     Dates: start: 2014
  18. TRICHLORMETHIAZIDE [Concomitant]
     Active Substance: TRICHLORMETHIAZIDE
     Indication: HYPERTENSION
     Dosage: 2 MG, 1X/DAY
     Route: 048
     Dates: start: 2014
  19. PRIMPERAN [Concomitant]
     Active Substance: METOCLOPRAMIDE HYDROCHLORIDE
     Indication: VOMITING
     Dosage: 10 MG, AS NEEDED
     Route: 042
     Dates: start: 20190706, end: 20190707
  20. DOXAZOSIN MESILATE [Concomitant]
     Active Substance: DOXAZOSIN MESYLATE
     Indication: HYPERTENSION
     Dosage: 2 MG, 1X/DAY
     Route: 048
     Dates: start: 2014

REACTIONS (1)
  - Cellulitis [Recovered/Resolved]

NARRATIVE: CASE EVENT DATE: 20190711
